FAERS Safety Report 22399778 (Version 2)
Quarter: 2023Q2

REPORT INFORMATION
  Report Type: Spontaneous
  Country: US (occurrence: US)
  Receive Date: 20230602
  Receipt Date: 20230607
  Transmission Date: 20230722
  Serious: Yes (Other)
  Sender: FDA-Public Use
  Company Number: US-PFIZER INC-PV202300097038

PATIENT
  Age: 83 Year
  Sex: Male

DRUGS (1)
  1. VYNDAMAX [Suspect]
     Active Substance: TAFAMIDIS
     Indication: Amyloidosis
     Dosage: 61 MG

REACTIONS (7)
  - Neoplasm malignant [Unknown]
  - Cardiac valve disease [Unknown]
  - Cerebrovascular accident [Unknown]
  - Memory impairment [Unknown]
  - Disturbance in attention [Unknown]
  - Dysgraphia [Unknown]
  - Off label use [Unknown]
